FAERS Safety Report 11057843 (Version 3)
Quarter: 2015Q4

REPORT INFORMATION
  Report Type: Report from Study
  Country: US (occurrence: US)
  Receive Date: 20150423
  Receipt Date: 20151208
  Transmission Date: 20160304
  Serious: Yes (Other)
  Sender: FDA-Public Use
  Company Number: US-AMGEN-USASP2015038419

PATIENT
  Age: 65 Year
  Sex: Female

DRUGS (1)
  1. ENBREL [Suspect]
     Active Substance: ETANERCEPT
     Indication: RHEUMATOID ARTHRITIS
     Dosage: UNK UNK, QWK (ON THURSDAYS)
     Route: 065
     Dates: start: 20140301

REACTIONS (4)
  - Injection site pain [Unknown]
  - Drug dose omission [Unknown]
  - Device issue [Unknown]
  - Diplegia [Not Recovered/Not Resolved]

NARRATIVE: CASE EVENT DATE: 20151022
